FAERS Safety Report 6347264-5 (Version None)
Quarter: 2009Q3

REPORT INFORMATION
  Report Type: 
  Country: None (occurrence: None)
  Receive Date: 20090910
  Receipt Date: 20090904
  Transmission Date: 20100115
  Serious: Yes (Hospitalization)
  Sender: FDA-Public Use
  Company Number: FR-BRISTOL-MYERS SQUIBB COMPANY-14770184

PATIENT
  Age: 1 Day
  Sex: Female
  Weight: 3 kg

DRUGS (1)
  1. CORGARD [Suspect]
     Dosage: 1 DF=80 MG IN MORNING AND 40 MG IN EVENING
     Route: 064
     Dates: start: 20090101, end: 20090331

REACTIONS (3)
  - BRADYCARDIA NEONATAL [None]
  - HYPOTHERMIA NEONATAL [None]
  - NEONATAL RESPIRATORY DISTRESS SYNDROME [None]
